FAERS Safety Report 6717224-0 (Version None)
Quarter: 2010Q2

REPORT INFORMATION
  Report Type: 
  Country: None (occurrence: None)
  Receive Date: 20100510
  Receipt Date: 20100503
  Transmission Date: 20101027
  Serious: Yes (Death, Hospitalization)
  Sender: FDA-Public Use
  Company Number: PHHY2010DE05829

PATIENT
  Sex: Female
  Weight: 67 kg

DRUGS (4)
  1. ZOLEDRONATE T29581+ [Suspect]
     Indication: PROPHYLAXIS
     Dosage: 4 MG EVERY 4 WEEKS
     Route: 042
     Dates: start: 20091028
  2. ZOLEDRONATE T29581+ [Suspect]
     Dosage: UNK
     Dates: start: 20100407
  3. LETROZOLE [Concomitant]
     Dosage: UNK
     Dates: start: 20041228
  4. GEMCITABINE HCL [Concomitant]
     Dosage: 1 GM/M^2
     Dates: start: 20090708

REACTIONS (5)
  - DEATH [None]
  - DYSPNOEA [None]
  - FLUID RETENTION [None]
  - LEUKOPENIA [None]
  - THROMBOCYTOPENIA [None]
